FAERS Safety Report 4550517-4 (Version None)
Quarter: 2004Q4

REPORT INFORMATION
  Report Type: 
  Country: None (occurrence: None)
  Receive Date: 20041217
  Receipt Date: 20040923
  Transmission Date: 20050328
  Serious: No
  Sender: FDA-Public Use
  Company Number: 2004-BP-08668BP

PATIENT
  Age: 76 Year
  Sex: Female

DRUGS (7)
  1. SPIRIVA [Suspect]
     Indication: CHRONIC OBSTRUCTIVE AIRWAYS DISEASE
     Dosage: 18 MCG (18 MCG), IH
     Route: 055
     Dates: start: 20040921, end: 20040923
  2. VASOTEC [Concomitant]
  3. COREG [Concomitant]
  4. URONTIN [Concomitant]
  5. LASIX (LASIX) [Concomitant]
  6. PREDNISONE [Concomitant]
  7. ADENOSINE [Concomitant]

REACTIONS (1)
  - RASH [None]
